FAERS Safety Report 25205795 (Version 1)
Quarter: 2025Q2

REPORT INFORMATION
  Report Type: Other
  Country: IT (occurrence: IT)
  Receive Date: 20250417
  Receipt Date: 20250417
  Transmission Date: 20250716
  Serious: Yes (Hospitalization)
  Sender: BIOCON
  Company Number: IT-AMGEN-ITASP2025063260

PATIENT

DRUGS (2)
  1. ADALIMUMAB [Suspect]
     Active Substance: ADALIMUMAB
     Indication: Psoriasis
     Route: 065
  2. LEVOFLOXACIN [Suspect]
     Active Substance: LEVOFLOXACIN
     Indication: Pericardial effusion
     Route: 065

REACTIONS (4)
  - Pleuropericarditis [Recovering/Resolving]
  - Antinuclear antibody positive [Unknown]
  - Therapy interrupted [Unknown]
  - Off label use [Unknown]
